FAERS Safety Report 5331926-2 (Version None)
Quarter: 2007Q2

REPORT INFORMATION
  Report Type: 
  Country: None (occurrence: None)
  Receive Date: 20070521
  Receipt Date: 20070511
  Transmission Date: 20071010
  Serious: Yes (Death)
  Sender: FDA-Public Use
  Company Number: 163-21880-07020506

PATIENT
  Age: 83 Year
  Sex: Male
  Weight: 70 kg

DRUGS (12)
  1. REVLIMID [Suspect]
     Indication: MULTIPLE MYELOMA
     Dosage: 25 MG, DAILY FOR 21 DAYS WITH 7 DAYS OFF, ORAL
     Route: 048
     Dates: start: 20070108, end: 20070101
  2. OXYCONTIN [Concomitant]
  3. LOPRESSOR [Concomitant]
  4. ALLOPURINOL [Concomitant]
  5. COLACE (DOCUSATE SODIUM) [Concomitant]
  6. FOLATE (FOLIC ACID) [Concomitant]
  7. LASIX [Concomitant]
  8. PHENOBARBITAL TAB [Concomitant]
  9. PHENYTOIN [Concomitant]
  10. ZYRTEC [Concomitant]
  11. ATOVAQUONE [Concomitant]
  12. AMLODIPINE [Concomitant]

REACTIONS (6)
  - KIDNEY INFECTION [None]
  - MALIGNANT NEOPLASM PROGRESSION [None]
  - MULTIPLE MYELOMA [None]
  - PALPITATIONS [None]
  - PNEUMONIA [None]
  - RENAL FAILURE [None]
